FAERS Safety Report 10573028 (Version 1)
Quarter: 2014Q4

REPORT INFORMATION
  Report Type: Spontaneous
  Country: FR (occurrence: None)
  Receive Date: 20141106
  Receipt Date: 20141106
  Transmission Date: 20150529
  Serious: Yes (Hospitalization)
  Sender: FDA-Public Use
  Company Number: B0994437A

PATIENT
  Sex: Female

DRUGS (1)
  1. DEROXAT [Suspect]
     Active Substance: PAROXETINE HYDROCHLORIDE
     Indication: DEPRESSION
     Dates: start: 200309, end: 200403

REACTIONS (20)
  - Diplopia [None]
  - Hyperacusis [None]
  - Hallucination, auditory [None]
  - Headache [None]
  - Eyelid oedema [None]
  - Persecutory delusion [None]
  - Thinking abnormal [None]
  - Visual acuity reduced [None]
  - Balance disorder [None]
  - Hyperthyroidism [None]
  - Basedow^s disease [None]
  - Insomnia [None]
  - Mania [None]
  - Conjunctival oedema [None]
  - Tachycardia [None]
  - Suicidal ideation [None]
  - Jaw disorder [None]
  - Exophthalmos [None]
  - Obsessive-compulsive disorder [None]
  - Dizziness [None]

NARRATIVE: CASE EVENT DATE: 2004
